FAERS Safety Report 9785252 (Version 1)
Quarter: 2013Q4

REPORT INFORMATION
  Report Type: Spontaneous
  Country: US (occurrence: None)
  Receive Date: 20131226
  Receipt Date: 20131226
  Transmission Date: 20140711
  Serious: No
  Sender: FDA-Public Use
  Company Number: None

PATIENT
  Sex: Female

DRUGS (1)
  1. LEVOFLOXACIN [Suspect]

REACTIONS (12)
  - Feeling abnormal [None]
  - Disorientation [None]
  - Pain [None]
  - Discomfort [None]
  - Loss of consciousness [None]
  - Back pain [None]
  - Convulsion [None]
  - Spinal fracture [None]
  - Posture abnormal [None]
  - Vomiting [None]
  - Haematemesis [None]
  - Cerebrovascular accident [None]
